FAERS Safety Report 21627837 (Version 2)
Quarter: 2023Q1

REPORT INFORMATION
  Report Type: Spontaneous
  Country: US (occurrence: US)
  Receive Date: 20221122
  Receipt Date: 20230104
  Transmission Date: 20230418
  Serious: Yes (Other)
  Sender: FDA-Public Use
  Company Number: US-PFIZER INC-202201307633

PATIENT
  Age: 80 Year
  Sex: Female
  Weight: 60.78 kg

DRUGS (1)
  1. ESTRING [Suspect]
     Active Substance: ESTRADIOL
     Indication: Atrophic vulvovaginitis
     Dosage: 2MG INSERTED VAGINALLY EVERY 3 MONTHS
     Route: 067
     Dates: start: 202211

REACTIONS (3)
  - Vulvovaginal discomfort [Unknown]
  - Application site discomfort [Unknown]
  - Complication of device removal [Unknown]
